FAERS Safety Report 20501833 (Version 2)
Quarter: 2022Q1

REPORT INFORMATION
  Report Type: Spontaneous
  Country: BR (occurrence: BR)
  Receive Date: 20220222
  Receipt Date: 20220323
  Transmission Date: 20220424
  Serious: Yes (Other)
  Sender: FDA-Public Use
  Company Number: BR-ABBVIE-22K-020-4286604-00

PATIENT
  Sex: Female
  Weight: 66 kg

DRUGS (7)
  1. HUMIRA [Suspect]
     Active Substance: ADALIMUMAB
     Indication: Rheumatoid arthritis
     Route: 058
     Dates: start: 2013, end: 2019
  2. HUMIRA [Suspect]
     Active Substance: ADALIMUMAB
     Route: 058
     Dates: start: 2021, end: 2021
  3. VALSARTAN [Concomitant]
     Active Substance: VALSARTAN
     Indication: Hypertension
     Route: 048
  4. HYDROXYCHLOROQUINE [Concomitant]
     Active Substance: HYDROXYCHLOROQUINE
     Indication: Rheumatoid arthritis
     Route: 048
     Dates: start: 2017
  5. VITAMIN D [Concomitant]
     Active Substance: VITAMIN D NOS
     Indication: Vitamin D decreased
     Route: 048
     Dates: start: 2014
  6. CALCIUM [Concomitant]
     Active Substance: CALCIUM
     Indication: Blood calcium
     Route: 048
     Dates: start: 2018
  7. COLLAGEN [Concomitant]
     Active Substance: COLLAGEN
     Indication: Product used for unknown indication
     Route: 048
     Dates: start: 2019

REACTIONS (14)
  - Extrasystoles [Recovering/Resolving]
  - Mobility decreased [Recovering/Resolving]
  - Cardiac discomfort [Recovering/Resolving]
  - Bursitis [Not Recovered/Not Resolved]
  - Cardiac disorder [Recovering/Resolving]
  - Dizziness [Not Recovered/Not Resolved]
  - Osteoarthritis [Not Recovered/Not Resolved]
  - Arthritis [Unknown]
  - Fibromyalgia [Not Recovered/Not Resolved]
  - Depressed mood [Not Recovered/Not Resolved]
  - Pain [Not Recovered/Not Resolved]
  - Pain in extremity [Not Recovered/Not Resolved]
  - Urinary tract infection [Recovering/Resolving]
  - Bladder pain [Unknown]

NARRATIVE: CASE EVENT DATE: 20200101
